FAERS Safety Report 9151460 (Version 1)
Quarter: 2013Q1

REPORT INFORMATION
  Report Type: Spontaneous
  Country: US (occurrence: US)
  Receive Date: 20130308
  Receipt Date: 20130308
  Transmission Date: 20140127
  Serious: No
  Sender: FDA-Public Use
  Company Number: US-TEVA-390457USA

PATIENT
  Sex: 0

DRUGS (2)
  1. TREANDA [Suspect]
  2. RITUXAN [Suspect]

REACTIONS (1)
  - Vomiting projectile [Unknown]
